FAERS Safety Report 18312230 (Version 1)
Quarter: 2020Q3

REPORT INFORMATION
  Report Type: Spontaneous
  Country: US (occurrence: US)
  Receive Date: 20200925
  Receipt Date: 20200925
  Transmission Date: 20201103
  Serious: Yes (Other)
  Sender: FDA-Public Use
  Company Number: None

PATIENT
  Age: 54 Year
  Sex: Female
  Weight: 108.6 kg

DRUGS (6)
  1. REMDESIVIR. [Suspect]
     Active Substance: REMDESIVIR
     Indication: COVID-19
     Route: 042
     Dates: start: 20200923
  2. HYCODAN [Concomitant]
     Active Substance: HOMATROPINE METHYLBROMIDE\HYDROCODONE BITARTRATE
     Dates: start: 20200922
  3. DEXAMETHASONE 6 MG [Concomitant]
     Dates: start: 20200924
  4. LOVENOX 50MG [Concomitant]
     Dates: start: 20200922
  5. ASCORBIC ACID 500 MG [Concomitant]
     Dates: start: 20200922
  6. METOPROLOL 25 MG [Concomitant]
     Active Substance: METOPROLOL
     Dates: start: 20200921

REACTIONS (2)
  - Neck pain [None]
  - Swelling [None]

NARRATIVE: CASE EVENT DATE: 20200924
